FAERS Safety Report 8261784-8 (Version None)
Quarter: 2012Q2

REPORT INFORMATION
  Report Type: 
  Country: None (occurrence: None)
  Receive Date: 20120405
  Receipt Date: 20120329
  Transmission Date: 20120825
  Serious: No
  Sender: FDA-Public Use
  Company Number: US-BAYER-2012-032902

PATIENT
  Age: 80 Year
  Sex: Female
  Weight: 77.098 kg

DRUGS (3)
  1. FLECAINIDE ACETATE [Concomitant]
  2. ALEVE (CAPLET) [Suspect]
     Indication: PAIN
     Dosage: UNK
     Route: 048
     Dates: start: 20120328
  3. VERAPAMIL [Concomitant]

REACTIONS (1)
  - PAIN [None]
